FAERS Safety Report 6348938-2 (Version None)
Quarter: 2009Q3

REPORT INFORMATION
  Report Type: 
  Country: None (occurrence: None)
  Receive Date: 20090908
  Receipt Date: 20090826
  Transmission Date: 20100115
  Serious: No
  Sender: FDA-Public Use
  Company Number: US024015

PATIENT
  Sex: Male
  Weight: 82.1011 kg

DRUGS (7)
  1. FENTORA [Suspect]
     Indication: INTERVERTEBRAL DISC PROTRUSION
     Dosage: 1600 MCG (400 MCG, 1 IN 6 HR), BU
     Route: 002
  2. FENTORA [Suspect]
     Indication: NEUROPATHY PERIPHERAL
     Dosage: 1600 MCG (400 MCG, 1 IN 6 HR), BU
     Route: 002
  3. ACTIQ [Suspect]
     Dosage: 2400 MCG (800 MCG, 1 IN 8 HR), BU; 3600 MCG (1200 MCG, 1 IN 8 HR), BU
     Route: 002
     Dates: start: 20050101
  4. DURAGESIC (FENTANYL) (POULTICE OR PATCH) [Concomitant]
  5. KADIAN [Concomitant]
  6. MORPHINE SULFATE INJ [Concomitant]
  7. DILAUDID [Concomitant]

REACTIONS (1)
  - CIRCUMSTANCE OR INFORMATION CAPABLE OF LEADING TO MEDICATION ERROR [None]
